FAERS Safety Report 10005173 (Version 1)
Quarter: 2014Q1

REPORT INFORMATION
  Report Type: Spontaneous
  Country: US (occurrence: US)
  Receive Date: 20140312
  Receipt Date: 20140312
  Transmission Date: 20141002
  Serious: Yes (Hospitalization)
  Sender: FDA-Public Use
  Company Number: US-PFIZER INC-2014071216

PATIENT
  Age: 67 Year
  Sex: Female
  Weight: 71.66 kg

DRUGS (4)
  1. EFFEXOR XR [Suspect]
     Indication: ANXIETY
     Dosage: 37.5 MG, DAILY
     Dates: start: 2006
  2. NOVOLOG [Concomitant]
     Indication: DIABETES MELLITUS
     Dosage: UNK,3X/DAY
  3. LANTUS [Concomitant]
     Indication: DIABETES MELLITUS
     Dosage: UNK,DAILY
  4. HYZAAR [Concomitant]
     Indication: HYPERTENSION
     Dosage: HYDROCHLOROTHIAZIDE 25 MG/ LOSARTAN POTASSIUM 100 MG, DAILY

REACTIONS (2)
  - Spinal disorder [Unknown]
  - Pain [Unknown]
